FAERS Safety Report 6648367-8 (Version None)
Quarter: 2010Q1

REPORT INFORMATION
  Report Type: 
  Country: None (occurrence: None)
  Receive Date: 20100324
  Receipt Date: 20100313
  Transmission Date: 20100710
  Serious: Yes (Hospitalization)
  Sender: FDA-Public Use
  Company Number: BR-BAYER-201010704LA

PATIENT
  Age: 30 Year
  Sex: Male

DRUGS (7)
  1. BETAFERON [Suspect]
     Indication: SECONDARY PROGRESSIVE MULTIPLE SCLEROSIS
     Dosage: TOTAL DAILY DOSE: 8 MIU
     Route: 058
     Dates: start: 20010101, end: 20090801
  2. BACLOFEN [Concomitant]
     Indication: MUSCLE RELAXANT THERAPY
     Route: 048
     Dates: start: 20010101
  3. CLONAZEPAM [Concomitant]
     Indication: MUSCLE RELAXANT THERAPY
     Route: 048
     Dates: start: 20010827
  4. FUNTYL [Concomitant]
     Indication: ONYCHOMYCOSIS
     Dosage: TOTAL DAILY DOSE: 1 DF
     Route: 048
     Dates: start: 20060101
  5. MANTIDAN [Concomitant]
     Indication: MUSCLE RELAXANT THERAPY
     Route: 048
     Dates: start: 20060101
  6. IBUPROFINIL [Concomitant]
     Indication: HEADACHE
     Dosage: TOTAL DAILY DOSE: 1 DF
     Route: 048
  7. PLOZEM [Concomitant]
     Indication: ANTIDEPRESSANT THERAPY
     Route: 048
     Dates: start: 20090101

REACTIONS (2)
  - ENCEPHALITIS [None]
  - MULTIPLE SCLEROSIS RELAPSE [None]
